FAERS Safety Report 7496417-1 (Version None)
Quarter: 2011Q2

REPORT INFORMATION
  Report Type: 
  Country: None (occurrence: None)
  Receive Date: 20110523
  Receipt Date: 20110503
  Transmission Date: 20111010
  Serious: No
  Sender: FDA-Public Use
  Company Number: US-ROXANE LABORATORIES, INC.-2011-RO-00456RO

PATIENT
  Sex: Male

DRUGS (4)
  1. AMLODIPINE [Suspect]
     Indication: HYPERTENSION
     Dosage: 5 MG
     Route: 048
     Dates: start: 20101221, end: 20110404
  2. STEROIDS [Concomitant]
  3. ZESTRIL [Concomitant]
     Indication: HYPERTENSION
  4. CORGARD [Concomitant]
     Indication: HYPERTENSION

REACTIONS (18)
  - HYPERHIDROSIS [None]
  - MUSCULAR WEAKNESS [None]
  - FLATULENCE [None]
  - DRUG INEFFECTIVE [None]
  - TINNITUS [None]
  - INSOMNIA [None]
  - BLOOD PRESSURE FLUCTUATION [None]
  - HEADACHE [None]
  - AGEUSIA [None]
  - COUGH [None]
  - GASTRIC HAEMORRHAGE [None]
  - HYPERSENSITIVITY [None]
  - MUSCLE SPASMS [None]
  - ERYTHEMA [None]
  - HYPOAESTHESIA [None]
  - ANOSMIA [None]
  - ABNORMAL DREAMS [None]
  - WEIGHT INCREASED [None]
